FAERS Safety Report 7572486-5 (Version None)
Quarter: 2011Q2

REPORT INFORMATION
  Report Type: 
  Country: None (occurrence: None)
  Receive Date: 20110627
  Receipt Date: 20110620
  Transmission Date: 20111010
  Serious: Yes (Hospitalization)
  Sender: FDA-Public Use
  Company Number: DE-BRISTOL-MYERS SQUIBB COMPANY-15843329

PATIENT
  Sex: Male

DRUGS (1)
  1. SPRYCEL [Suspect]

REACTIONS (2)
  - FALL [None]
  - CEREBRAL HAEMORRHAGE [None]
